FAERS Safety Report 4874865-3 (Version None)
Quarter: 2006Q1

REPORT INFORMATION
  Report Type: 
  Country: None (occurrence: None)
  Receive Date: 20060104
  Receipt Date: 20051222
  Transmission Date: 20060701
  Serious: Yes (Other)
  Sender: FDA-Public Use
  Company Number: 2005172408

PATIENT
  Age: 24 Year
  Sex: Female
  Weight: 95 kg

DRUGS (2)
  1. DEPO-PROVERA [Suspect]
     Indication: ILL-DEFINED DISORDER
     Dosage: 150 MG (150 MG, 1ST INJECTION,) INTRAMUSCULAR; 150 MG (150 MG, LAST INJECTION), INTRAMUSCULAR
     Route: 030
     Dates: start: 20050202, end: 20050202
  2. DEPO-PROVERA [Suspect]
     Indication: ILL-DEFINED DISORDER
     Dosage: 150 MG (150 MG, 1ST INJECTION,) INTRAMUSCULAR; 150 MG (150 MG, LAST INJECTION), INTRAMUSCULAR
     Route: 030
     Dates: start: 20051207, end: 20051207

REACTIONS (6)
  - COUGH [None]
  - FLUSHING [None]
  - HEADACHE [None]
  - MICTURITION URGENCY [None]
  - PARAESTHESIA [None]
  - SNEEZING [None]
